FAERS Safety Report 18683504 (Version 2)
Quarter: 2021Q1

REPORT INFORMATION
  Report Type: Spontaneous
  Country: US (occurrence: US)
  Receive Date: 20201230
  Receipt Date: 20210205
  Transmission Date: 20210419
  Serious: No
  Sender: FDA-Public Use
  Company Number: US-TAKEDA-2020TUS059950

PATIENT
  Sex: Female
  Weight: 59 kg

DRUGS (6)
  1. ENTYVIO [Suspect]
     Active Substance: VEDOLIZUMAB
     Indication: COLITIS ULCERATIVE
     Dosage: 300 MILLIGRAM, Q8WEEKS
     Route: 042
     Dates: start: 201410
  2. LIALDA [Suspect]
     Active Substance: MESALAMINE
     Indication: COLITIS ULCERATIVE
     Dosage: 2.4 GRAM, BID
     Route: 065
     Dates: start: 201410
  3. MULTIVITAMINS [VITAMINS NOS] [Concomitant]
     Active Substance: VITAMINS
  4. ACYCLOVIR [ACICLOVIR] [Concomitant]
     Active Substance: ACYCLOVIR
  5. ZYRTEC [Concomitant]
     Active Substance: CETIRIZINE HYDROCHLORIDE
  6. CALCIUM [Concomitant]
     Active Substance: CALCIUM

REACTIONS (2)
  - No adverse event [None]
  - Drug ineffective [Unknown]
